FAERS Safety Report 7381190-8 (Version None)
Quarter: 2011Q1

REPORT INFORMATION
  Report Type: 
  Country: None (occurrence: None)
  Receive Date: 20110329
  Receipt Date: 20071224
  Transmission Date: 20110831
  Serious: Yes (Death, Life-Threatening, Hospitalization, Disabling, Other)
  Sender: FDA-Public Use
  Company Number: US-BAYER-200717049NA

PATIENT
  Sex: Male
  Weight: 142 kg

DRUGS (35)
  1. TRASYLOL [Suspect]
     Indication: CORONARY ARTERY BYPASS
     Dosage: 25 CC/HR
     Dates: start: 20051227, end: 20051227
  2. ACETYLSALICYLIC ACID SRT [Concomitant]
     Dosage: 81MG DAILY
     Route: 048
  3. VALIUM [Concomitant]
     Dosage: UNK
     Route: 042
     Dates: start: 20051227
  4. HEPARIN SODIUM [Concomitant]
     Dosage: UNK
     Route: 042
     Dates: start: 20051227
  5. INSULIN [Concomitant]
     Dosage: 32 U, UNK
     Route: 042
     Dates: start: 20051227
  6. PROTAMINE SULFATE [Concomitant]
     Dosage: 120 MG/HR, UNK
     Route: 042
     Dates: start: 20051227
  7. PLATELETS [Concomitant]
     Dosage: 1 PACK
     Dates: start: 20051227
  8. HEPARIN SODIUM [Concomitant]
     Dosage: 27000 U, UNK
     Route: 042
     Dates: start: 20051227
  9. BACTROBAN [Concomitant]
     Dosage: 22 G, UNK
     Route: 045
  10. AMIODARONE HCL [Concomitant]
     Dosage: 200 MG, Q8H
     Route: 042
  11. NORVASC [Concomitant]
     Dosage: 10 MG, DAILY
     Route: 048
     Dates: start: 20050916
  12. PREVACID [Concomitant]
     Dosage: 15 MG, DAILY
     Route: 048
  13. FENTANYL [Concomitant]
     Dosage: 500 MCG, UNK
     Route: 042
     Dates: start: 20051227
  14. CEFAZOLIN [Concomitant]
     Dosage: 2 G, UNK
     Route: 042
     Dates: start: 20051227
  15. ROCURONIUM [Concomitant]
     Dosage: 60 MG, UNK
     Route: 042
     Dates: start: 20051227
  16. MANNITOL [Concomitant]
     Dosage: 50 ML, UNK
     Route: 042
     Dates: start: 20051227
  17. ETOMIDATE [Concomitant]
     Dosage: 15 MG, UNK
     Route: 042
     Dates: start: 20051227
  18. CALCIUM CHLORIDE [Concomitant]
     Dosage: 1000 MG, UNK
     Route: 042
     Dates: start: 20051227
  19. DOPAMINE [Concomitant]
     Dosage: 5MCG/KG/HOUR
     Route: 042
     Dates: start: 20051227
  20. FRESH FROZEN PLASMA [Concomitant]
     Dosage: 2 U, UNK
     Dates: start: 20051227
  21. CARDIZEM [Concomitant]
     Dosage: AS NEEDED
  22. VYTORIN [Concomitant]
     Dosage: 10-20MG DAILY
     Route: 048
  23. BENADRYL [Concomitant]
     Dosage: UNK
     Dates: start: 20051227
  24. FUROSEMIDE [Concomitant]
     Dosage: 40 MG TWICE DAILY
     Route: 042
  25. CEFAZOLIN [Concomitant]
     Dosage: 100 MG EVERY 8 HRS
     Route: 042
  26. MORPHINE SULFATE [Concomitant]
     Dosage: 2-4 MG
     Route: 042
  27. TRASYLOL [Suspect]
     Indication: AORTIC VALVE REPLACEMENT
     Dosage: 100 ML, LOADING DOSE
     Dates: start: 20051227, end: 20051227
  28. SOLU-MEDROL [Concomitant]
     Dosage: 2 G, UNK
     Route: 042
     Dates: start: 20051227
  29. NITROGLYCERIN [Concomitant]
     Dosage: 5ML/HOUR
     Route: 042
     Dates: start: 20051227
  30. PROTAMINE SULFATE [Concomitant]
     Dosage: 25 MG, UNK
     Route: 042
     Dates: start: 20051227
  31. CLONIDINE [Concomitant]
     Dosage: .1 MG, DAILY
     Route: 048
     Dates: start: 20050917
  32. CEREZYME [Concomitant]
     Dosage: 30 U, Q2WK
     Route: 042
  33. TRIDIL [Concomitant]
     Route: 042
  34. MIDAZOLAM [Concomitant]
     Dosage: 1 MG, UNK
     Route: 042
     Dates: start: 20051227
  35. PRECEDEX [Concomitant]
     Dosage: 0.3MCG/KG/HOUR
     Route: 042
     Dates: start: 20051227

REACTIONS (15)
  - DEATH [None]
  - RENAL INJURY [None]
  - EMOTIONAL DISTRESS [None]
  - RENAL FAILURE [None]
  - UNEVALUABLE EVENT [None]
  - INJURY [None]
  - ANXIETY [None]
  - LIFE EXPECTANCY SHORTENED [None]
  - GENERAL PHYSICAL HEALTH DETERIORATION [None]
  - ANHEDONIA [None]
  - PAIN [None]
  - DEPRESSION [None]
  - MENTAL DISORDER [None]
  - STRESS [None]
  - DISABILITY [None]
